FAERS Safety Report 5410434-4 (Version None)
Quarter: 2007Q3

REPORT INFORMATION
  Report Type: 
  Country: None (occurrence: None)
  Receive Date: 20070810
  Receipt Date: 20070806
  Transmission Date: 20080115
  Serious: Yes (Other)
  Sender: FDA-Public Use
  Company Number: PHEH2007US08957

PATIENT

DRUGS (1)
  1. TRILEPTAL [Suspect]

REACTIONS (1)
  - ORGAN TRANSPLANT [None]
